FAERS Safety Report 25539572 (Version 4)
Quarter: 2025Q4

REPORT INFORMATION
  Report Type: Spontaneous
  Country: US (occurrence: US)
  Receive Date: 20250710
  Receipt Date: 20251127
  Transmission Date: 20260117
  Serious: No
  Sender: LUPIN
  Company Number: US-LUPIN PHARMACEUTICALS INC.-2025-05948

PATIENT

DRUGS (5)
  1. TOLVAPTAN [Suspect]
     Active Substance: TOLVAPTAN
     Indication: Chronic kidney disease
     Dosage: 1 DOSAGE FORM, QD (EARLY MORNING)
  2. TOLVAPTAN [Suspect]
     Active Substance: TOLVAPTAN
     Dosage: 1 DOSAGE FORM, QD (EARLY MORNING)
  3. TOLVAPTAN [Suspect]
     Active Substance: TOLVAPTAN
     Indication: Chronic kidney disease
     Dosage: 1 DOSAGE FORM, QD (8 HOURS LATER)
  4. TOLVAPTAN [Suspect]
     Active Substance: TOLVAPTAN
     Dosage: 1 DOSAGE FORM, QD (8 HOURS LATER)
  5. JYNARQUE [Concomitant]
     Active Substance: TOLVAPTAN
     Indication: Product used for unknown indication
     Dosage: 60 MG-30 MG TAB PAK
     Route: 065

REACTIONS (12)
  - Rash [Unknown]
  - Dry mouth [Unknown]
  - Dry skin [Unknown]
  - Fatigue [Unknown]
  - Heart rate irregular [Unknown]
  - Pollakiuria [Unknown]
  - Pruritus [Unknown]
  - Decreased appetite [Unknown]
  - Thirst [Unknown]
  - Product dose omission issue [Unknown]
  - Sleep disorder [Unknown]
  - Dizziness [Unknown]
